FAERS Safety Report 8890081 (Version 1)
Quarter: 2012Q4

REPORT INFORMATION
  Report Type: 
  Country: US (occurrence: US)
  Receive Date: 20121107
  Receipt Date: 20121107
  Transmission Date: 20130627
  Serious: Yes (Other)
  Sender: FDA-Public Use
  Company Number: US-ASTRAZENECA-2011SE69189

PATIENT
  Age: 69 Year
  Sex: Male
  Weight: 117.9 kg

DRUGS (7)
  1. CRESTOR [Suspect]
     Indication: BLOOD CHOLESTEROL ABNORMAL
     Route: 048
  2. METFORMIN [Concomitant]
  3. AMARYL [Concomitant]
  4. LISINOPRIL [Concomitant]
     Route: 048
  5. JANUVIA [Concomitant]
  6. ATENOLOL [Concomitant]
     Route: 048
  7. ASPIRIN [Concomitant]

REACTIONS (3)
  - Myopathy [Unknown]
  - Gait disturbance [Unknown]
  - Pain [Unknown]
